FAERS Safety Report 5367524-4 (Version None)
Quarter: 2007Q2

REPORT INFORMATION
  Report Type: 
  Country: None (occurrence: None)
  Receive Date: 20070622
  Receipt Date: 20070619
  Transmission Date: 20071010
  Serious: Yes (Life-Threatening, Other)
  Sender: FDA-Public Use
  Company Number: GB-ASTRAZENECA-2007GB01306

PATIENT
  Age: 50 Year
  Sex: Female
  Weight: 51 kg

DRUGS (1)
  1. QUETIAPINE [Suspect]
     Indication: AGITATION
     Route: 048
     Dates: start: 20070523, end: 20070530

REACTIONS (2)
  - MOUTH ULCERATION [None]
  - SWOLLEN TONGUE [None]
